FAERS Safety Report 4687449-7 (Version None)
Quarter: 2005Q2

REPORT INFORMATION
  Report Type: 
  Country: None (occurrence: None)
  Receive Date: 20050609
  Receipt Date: 20050609
  Transmission Date: 20051028
  Serious: Yes (Other)
  Sender: FDA-Public Use
  Company Number: None

PATIENT
  Sex: Female
  Weight: 70.3075 kg

DRUGS (1)
  1. ADVAIR DISKUS 100/50 [Suspect]
     Indication: ASTHMA
     Dosage: 100/50    TWICE A DAY   ORAL
     Route: 048
     Dates: start: 20020301, end: 20050606

REACTIONS (19)
  - ABDOMINAL OBESITY [None]
  - ARTHRALGIA [None]
  - CHEST DISCOMFORT [None]
  - DISTURBANCE IN ATTENTION [None]
  - DIZZINESS [None]
  - DYSPEPSIA [None]
  - FATIGUE [None]
  - HEADACHE [None]
  - INFLUENZA LIKE ILLNESS [None]
  - INSOMNIA [None]
  - IRRITABILITY [None]
  - MYALGIA [None]
  - ORAL PAIN [None]
  - PHARYNGOLARYNGEAL PAIN [None]
  - SINUS DISORDER [None]
  - SKIN PAPILLOMA [None]
  - TENDERNESS [None]
  - VISION BLURRED [None]
  - WEIGHT INCREASED [None]
